FAERS Safety Report 6835930-4 (Version None)
Quarter: 2010Q3

REPORT INFORMATION
  Report Type: 
  Country: None (occurrence: None)
  Receive Date: 20100713
  Receipt Date: 20100623
  Transmission Date: 20110219
  Serious: Yes (Hospitalization)
  Sender: FDA-Public Use
  Company Number: A0790006A

PATIENT
  Age: 51 Year
  Sex: Female
  Weight: 159.1 kg

DRUGS (6)
  1. AVANDIA [Suspect]
     Indication: TYPE 2 DIABETES MELLITUS
     Route: 048
     Dates: start: 20031001, end: 20080101
  2. FUROSEMIDE [Concomitant]
  3. METOPROLOL [Concomitant]
  4. FUROSEMIDE [Concomitant]
  5. AMLODIPINE [Concomitant]
  6. PREDNISONE [Concomitant]

REACTIONS (12)
  - CARDIOVASCULAR DISORDER [None]
  - CAROTID ARTERIOSCLEROSIS [None]
  - CEREBROVASCULAR ACCIDENT [None]
  - ECONOMIC PROBLEM [None]
  - INTRACARDIAC THROMBUS [None]
  - ISCHAEMIC STROKE [None]
  - LEFT ATRIAL DILATATION [None]
  - PAIN [None]
  - PANCYTOPENIA [None]
  - PARALYSIS [None]
  - QUALITY OF LIFE DECREASED [None]
  - RENAL TRANSPLANT [None]
